FAERS Safety Report 22644929 (Version 1)
Quarter: 2023Q2

REPORT INFORMATION
  Report Type: Spontaneous
  Country: US (occurrence: None)
  Receive Date: 20230624
  Receipt Date: 20230624
  Transmission Date: 20230722
  Serious: Yes (Disabling)
  Sender: FDA-Public Use
  Company Number: None

PATIENT
  Sex: Female
  Weight: 76.5 kg

DRUGS (5)
  1. SUBOXONE [Suspect]
     Active Substance: BUPRENORPHINE HYDROCHLORIDE\NALOXONE HYDROCHLORIDE
  2. GABAPENTIN [Concomitant]
     Active Substance: GABAPENTIN
  3. LAMICTAL [Concomitant]
     Active Substance: LAMOTRIGINE
  4. RIZATRIPTAN [Concomitant]
     Active Substance: RIZATRIPTAN
  5. VITAMINS [Concomitant]
     Active Substance: VITAMINS

REACTIONS (3)
  - Dental caries [None]
  - Gingival recession [None]
  - Tooth injury [None]
